FAERS Safety Report 7708425-3 (Version None)
Quarter: 2011Q3

REPORT INFORMATION
  Report Type: 
  Country: None (occurrence: None)
  Receive Date: 20110825
  Receipt Date: 20110817
  Transmission Date: 20111222
  Serious: Yes (Other)
  Sender: FDA-Public Use
  Company Number: US-JNJFOC-20110808478

PATIENT
  Sex: Male
  Weight: 63.5 kg

DRUGS (2)
  1. SIMPONI [Suspect]
     Indication: RHEUMATOID ARTHRITIS
     Route: 058
     Dates: start: 20090601
  2. SIMPONI [Suspect]
     Indication: ANKYLOSING SPONDYLITIS
     Route: 058
     Dates: start: 20090601

REACTIONS (4)
  - PULMONARY ARTERIAL HYPERTENSION [None]
  - DEVICE MALFUNCTION [None]
  - DRUG DOSE OMISSION [None]
  - DRUG INEFFECTIVE [None]
